FAERS Safety Report 7761359-0 (Version None)
Quarter: 2011Q3

REPORT INFORMATION
  Report Type: 
  Country: None (occurrence: None)
  Receive Date: 20110920
  Receipt Date: 20110914
  Transmission Date: 20111222
  Serious: No
  Sender: FDA-Public Use
  Company Number: US-PFIZER INC-2011217380

PATIENT
  Sex: Female
  Weight: 67.12 kg

DRUGS (6)
  1. ELAVIL [Concomitant]
     Indication: MYALGIA
     Dosage: 50 MG, DAILY
  2. LYRICA [Suspect]
     Indication: HEADACHE
     Dosage: 100 MG, 3X/DAY
     Route: 048
     Dates: start: 20110701, end: 20110101
  3. ELAVIL [Concomitant]
     Indication: BACK PAIN
  4. LYRICA [Suspect]
     Dosage: 150 MG, 3X/DAY
     Route: 048
     Dates: start: 20110101, end: 20110101
  5. DILTIAZEM [Concomitant]
     Indication: BLOOD PRESSURE ABNORMAL
     Dosage: 180 MG, DAILY
  6. CALCIUM WITH VITAMIN D [Concomitant]
     Dosage: UNK

REACTIONS (3)
  - DRUG INEFFECTIVE [None]
  - DYSURIA [None]
  - BLADDER PAIN [None]
